FAERS Safety Report 10602060 (Version 1)
Quarter: 2014Q4

REPORT INFORMATION
  Report Type: Spontaneous
  Country: FR (occurrence: None)
  Receive Date: 20141120
  Receipt Date: 20141120
  Transmission Date: 20150529
  Serious: Yes (Hospitalization)
  Sender: FDA-Public Use
  Company Number: FR2014SGK020383

PATIENT
  Age: 68 Year
  Sex: Male

DRUGS (1)
  1. MARAVIROC [Suspect]
     Active Substance: MARAVIROC
     Indication: HIV INFECTION

REACTIONS (4)
  - Oedema [None]
  - Dyspnoea [None]
  - General physical health deterioration [None]
  - Malnutrition [None]

NARRATIVE: CASE EVENT DATE: 20141106
